FAERS Safety Report 17950350 (Version 1)
Quarter: 2020Q2

REPORT INFORMATION
  Report Type: Spontaneous
  Country: US (occurrence: US)
  Receive Date: 20200626
  Receipt Date: 20200626
  Transmission Date: 20200714
  Serious: No
  Sender: FDA-Public Use
  Company Number: US-ASTRAZENECA-2020SE71403

PATIENT
  Age: 7894 Day
  Sex: Female
  Weight: 65.8 kg

DRUGS (2)
  1. SYMBICORT [Suspect]
     Active Substance: BUDESONIDE\FORMOTEROL FUMARATE DIHYDRATE
     Indication: CHEST DISCOMFORT
     Dosage: TWO RESPIRATORY INHALATIONS TWICE A DAY
     Route: 053
     Dates: start: 20200513, end: 20200514
  2. SYMBICORT [Suspect]
     Active Substance: BUDESONIDE\FORMOTEROL FUMARATE DIHYDRATE
     Indication: DYSPNOEA
     Dosage: TWO RESPIRATORY INHALATIONS TWICE A DAY
     Route: 053
     Dates: start: 20200513, end: 20200514

REACTIONS (3)
  - Dyspnoea [Recovered/Resolved]
  - Fatigue [Recovered/Resolved]
  - Chest discomfort [Recovered/Resolved]

NARRATIVE: CASE EVENT DATE: 20200513
